FAERS Safety Report 7736100-8 (Version None)
Quarter: 2011Q3

REPORT INFORMATION
  Report Type: 
  Country: None (occurrence: None)
  Receive Date: 20110817
  Receipt Date: 20110126
  Transmission Date: 20111222
  Serious: Yes (Hospitalization, Other)
  Sender: FDA-Public Use
  Company Number: 201110018

PATIENT
  Sex: Female

DRUGS (2)
  1. ORAL BACLOFEN [Concomitant]
  2. LIORESAL [Suspect]
     Indication: MUSCLE SPASTICITY
     Dosage: 100 MCG, DAILY, INTRATHECAL
     Route: 037

REACTIONS (6)
  - ANTIBIOTIC THERAPY [None]
  - MUSCLE SPASMS [None]
  - NOSOCOMIAL INFECTION [None]
  - IMPLANT SITE INFECTION [None]
  - INSOMNIA [None]
  - MUSCLE TIGHTNESS [None]
